FAERS Safety Report 6429820-9 (Version None)
Quarter: 2009Q4

REPORT INFORMATION
  Report Type: 
  Country: None (occurrence: None)
  Receive Date: 20091106
  Receipt Date: 20091030
  Transmission Date: 20100525
  Serious: Yes (Other)
  Sender: FDA-Public Use
  Company Number: US-JNJFOC-20091100196

PATIENT
  Age: 90 Year
  Sex: Female
  Weight: 61.24 kg

DRUGS (4)
  1. TYLENOL (CAPLET) [Suspect]
     Route: 048
  2. TYLENOL (CAPLET) [Suspect]
     Indication: ARTHRALGIA
     Route: 048
  3. ATENOLOL [Concomitant]
     Indication: HYPERTENSION
  4. THYROID TAB [Concomitant]
     Indication: THYROID DISORDER

REACTIONS (4)
  - CHOKING [None]
  - DYSPHAGIA [None]
  - DYSPNOEA [None]
  - FOREIGN BODY [None]
